FAERS Safety Report 9666286 (Version 2)
Quarter: 2013Q4

REPORT INFORMATION
  Report Type: Spontaneous
  Country: US (occurrence: US)
  Receive Date: 20131104
  Receipt Date: 20131127
  Transmission Date: 20140711
  Serious: Yes (Other)
  Sender: FDA-Public Use
  Company Number: 2013SP003182

PATIENT
  Age: 70 Year
  Sex: Female

DRUGS (6)
  1. LUNESTA [Suspect]
     Indication: INSOMNIA
     Route: 048
     Dates: start: 20131118
  2. LUNESTA [Suspect]
     Indication: INSOMNIA
     Route: 048
     Dates: start: 2012, end: 2013
  3. AMBIEN [Concomitant]
     Indication: INSOMNIA
     Dates: start: 20130903, end: 201311
  4. AMBIEN [Concomitant]
     Indication: INSOMNIA
     Dates: start: 2002, end: 2012
  5. ALL OTHER THERAPEUTIC PRODUCTS [Concomitant]
     Indication: BLOOD CHOLESTEROL ABNORMAL
  6. THYROID THERAPY [Concomitant]
     Indication: HYPOTHYROIDISM

REACTIONS (3)
  - Breast cancer [Recovered/Resolved with Sequelae]
  - Drug ineffective [None]
  - Insomnia [Recovered/Resolved]
